FAERS Safety Report 18036084 (Version 1)
Quarter: 2020Q3

REPORT INFORMATION
  Report Type: Spontaneous
  Country: US (occurrence: US)
  Receive Date: 20200716
  Receipt Date: 20200716
  Transmission Date: 20201103
  Serious: Yes (Other)
  Sender: FDA-Public Use
  Company Number: None

PATIENT
  Age: 66 Year
  Sex: Male

DRUGS (1)
  1. BUPRENORPHINE (BUPRENORPHINE HCL 2MG TAB, SUBLINGUAL) [Suspect]
     Active Substance: BUPRENORPHINE HYDROCHLORIDE
     Indication: DRUG DEPENDENCE
     Dates: start: 20190930, end: 20191003

REACTIONS (1)
  - Angioedema [None]

NARRATIVE: CASE EVENT DATE: 20191003
